FAERS Safety Report 6244294-9 (Version None)
Quarter: 2009Q2

REPORT INFORMATION
  Report Type: 
  Country: None (occurrence: None)
  Receive Date: 20090625
  Receipt Date: 20090615
  Transmission Date: 20091009
  Serious: Yes (Hospitalization)
  Sender: FDA-Public Use
  Company Number: ES-WYE-H09743109

PATIENT
  Age: 39 Year
  Sex: Male

DRUGS (6)
  1. VENLAFAXINE HYDROCHLORIDE [Suspect]
     Indication: ANXIETY
  2. VENLAFAXINE HYDROCHLORIDE [Suspect]
     Indication: DEPRESSION
  3. CLORAZEPATE DIPOTASSIUM [Suspect]
     Indication: ANXIETY
  4. CLORAZEPATE DIPOTASSIUM [Suspect]
     Indication: DEPRESSION
  5. LORAZEPAM [Suspect]
     Indication: ANXIETY
  6. LORAZEPAM [Suspect]
     Indication: DEPRESSION

REACTIONS (2)
  - HEPATITIS CHOLESTATIC [None]
  - HEPATOTOXICITY [None]
